FAERS Safety Report 19932643 (Version 1)
Quarter: 2021Q4

REPORT INFORMATION
  Report Type: Spontaneous
  Country: US (occurrence: US)
  Receive Date: 20211007
  Receipt Date: 20211007
  Transmission Date: 20220304
  Serious: Yes (Life-Threatening, Disabling, Congenital Anomaly)
  Sender: FDA-Public Use
  Company Number: None

PATIENT
  Age: 20 Year
  Sex: Female
  Weight: 67.5 kg

DRUGS (3)
  1. FLUOXETINE HYDROCHLORIDE [Suspect]
     Active Substance: FLUOXETINE HYDROCHLORIDE
     Indication: Anxiety
     Route: 048
  2. FLUOXETINE HYDROCHLORIDE [Suspect]
     Active Substance: FLUOXETINE HYDROCHLORIDE
     Indication: Obsessive-compulsive disorder
  3. FLUOXETINE HYDROCHLORIDE [Suspect]
     Active Substance: FLUOXETINE HYDROCHLORIDE
     Indication: Affective disorder

REACTIONS (23)
  - Withdrawal syndrome [None]
  - Irritability [None]
  - Anxiety [None]
  - Decreased appetite [None]
  - Nausea [None]
  - Thirst [None]
  - Panic disorder [None]
  - Fear [None]
  - Paranoia [None]
  - Akathisia [None]
  - Insomnia [None]
  - Aggression [None]
  - Obsessive thoughts [None]
  - Mood swings [None]
  - Suicidal ideation [None]
  - Fatigue [None]
  - Anxiety [None]
  - Crying [None]
  - Sexual dysfunction [None]
  - Visual impairment [None]
  - Orthostatic hypotension [None]
  - Blood sodium decreased [None]
  - Drug dependence [None]

NARRATIVE: CASE EVENT DATE: 20190808
